FAERS Safety Report 17747032 (Version 1)
Quarter: 2020Q2

REPORT INFORMATION
  Report Type: Report from Study
  Country: GB (occurrence: GB)
  Receive Date: 20200505
  Receipt Date: 20200505
  Transmission Date: 20200714
  Serious: Yes (Hospitalization, Other)
  Sender: FDA-Public Use
  Company Number: GB-PERRIGO-20GB005839

PATIENT

DRUGS (2)
  1. SANDOSTATIN [Suspect]
     Active Substance: OCTREOTIDE ACETATE
     Indication: NEUROENDOCRINE TUMOUR
     Dosage: 30 MG EVERY 21 DAYS
     Route: 030
     Dates: start: 20170712
  2. LOPERAMIDE [LOPERAMIDE HYDROCHLORIDE] [Suspect]
     Active Substance: LOPERAMIDE HYDROCHLORIDE
     Indication: DIARRHOEA
     Dosage: 2 MG 10 TIMES/DAY
     Route: 065

REACTIONS (3)
  - Nephrostomy [Unknown]
  - Renal disorder [Unknown]
  - Body temperature increased [Unknown]
